FAERS Safety Report 19392737 (Version 1)
Quarter: 2021Q2

REPORT INFORMATION
  Report Type: Spontaneous
  Country: JP (occurrence: JP)
  Receive Date: 20210609
  Receipt Date: 20210609
  Transmission Date: 20210717
  Serious: Yes (Other)
  Sender: FDA-Public Use
  Company Number: NVSJ2020JP014473

PATIENT
  Age: 58 Year
  Sex: Female

DRUGS (2)
  1. BEOVU [Suspect]
     Active Substance: BROLUCIZUMAB-DBLL
     Indication: AGE-RELATED MACULAR DEGENERATION
     Dosage: 6 MG
     Route: 031
     Dates: start: 20200622, end: 20200622
  2. BEOVU [Suspect]
     Active Substance: BROLUCIZUMAB-DBLL
     Dosage: 6 MG
     Route: 031
     Dates: start: 20200914, end: 20200914

REACTIONS (7)
  - Retinal vascular occlusion [Unknown]
  - Retinal perivascular sheathing [Recovered/Resolved]
  - Retinal artery stenosis [Unknown]
  - Eye inflammation [Recovering/Resolving]
  - Vitreous floaters [Unknown]
  - Vitreous opacities [Recovered/Resolved]
  - Visual acuity reduced [Unknown]

NARRATIVE: CASE EVENT DATE: 20201026
